FAERS Safety Report 13668717 (Version 1)
Quarter: 2017Q2

REPORT INFORMATION
  Report Type: Report from Study
  Country: CO (occurrence: CO)
  Receive Date: 20170620
  Receipt Date: 20170620
  Transmission Date: 20170830
  Serious: Yes (Hospitalization)
  Sender: FDA-Public Use
  Company Number: CO-ASTELLAS-2017US024215

PATIENT
  Age: 50 Year
  Sex: Male
  Weight: 56 kg

DRUGS (1)
  1. TACROLIMUS. [Suspect]
     Active Substance: TACROLIMUS
     Indication: RENAL TRANSPLANT
     Route: 048
     Dates: start: 20140712

REACTIONS (1)
  - Arteriovenous fistula thrombosis [Not Recovered/Not Resolved]

NARRATIVE: CASE EVENT DATE: 20170610
